FAERS Safety Report 7469117-1 (Version None)
Quarter: 2011Q2

REPORT INFORMATION
  Report Type: 
  Country: None (occurrence: None)
  Receive Date: 20110510
  Receipt Date: 20110426
  Transmission Date: 20111010
  Serious: Yes (Life-Threatening, Hospitalization, Other)
  Sender: FDA-Public Use
  Company Number: US-ELI_LILLY_AND_COMPANY-US201104007435

PATIENT
  Age: 76 Year
  Sex: Female

DRUGS (5)
  1. CYMBALTA [Suspect]
     Dosage: 60 MG, QD
  2. CARDIZEM [Concomitant]
  3. CLARITIN [Concomitant]
  4. POTASSIUM [Concomitant]
  5. AGGRENOX [Concomitant]

REACTIONS (3)
  - PNEUMONIA [None]
  - GASTROINTESTINAL TUBE INSERTION [None]
  - MECHANICAL VENTILATION [None]
